FAERS Safety Report 21586775 (Version 2)
Quarter: 2022Q4

REPORT INFORMATION
  Report Type: Spontaneous
  Country: PL (occurrence: PL)
  Receive Date: 20221113
  Receipt Date: 20221228
  Transmission Date: 20230112
  Serious: Yes (Other)
  Sender: FDA-Public Use
  Company Number: PL-BAYER-2022P020817

PATIENT
  Sex: Female

DRUGS (1)
  1. XARELTO [Suspect]
     Active Substance: RIVAROXABAN
     Indication: Deep vein thrombosis
     Dosage: 20 MG, QD
     Route: 048
     Dates: start: 2022, end: 2022

REACTIONS (6)
  - Erythema [Recovering/Resolving]
  - Skin lesion [Recovering/Resolving]
  - Hyperaesthesia [Recovering/Resolving]
  - Rash pruritic [Recovering/Resolving]
  - Pain of skin [Recovering/Resolving]
  - Skin irritation [Recovering/Resolving]

NARRATIVE: CASE EVENT DATE: 20220101
